FAERS Safety Report 11811005 (Version 2)
Quarter: 2016Q1

REPORT INFORMATION
  Report Type: Spontaneous
  Country: DE (occurrence: DE)
  Receive Date: 20151208
  Receipt Date: 20160122
  Transmission Date: 20160525
  Serious: Yes (Hospitalization, Other)
  Sender: FDA-Public Use
  Company Number: DE-BAYER-2015-480818

PATIENT
  Age: 59 Year
  Sex: Male
  Weight: 97 kg

DRUGS (2)
  1. REGORAFENIB [Suspect]
     Active Substance: REGORAFENIB
     Indication: GASTROINTESTINAL STROMAL TUMOUR
     Dosage: 40 MG, QID
     Dates: start: 201505, end: 201511
  2. FALITHROM [Concomitant]
     Active Substance: PHENPROCOUMON
     Indication: INTERNATIONAL NORMALISED RATIO ABNORMAL
     Dosage: UNK
     Dates: start: 2015

REACTIONS (1)
  - Pulmonary embolism [Recovering/Resolving]

NARRATIVE: CASE EVENT DATE: 20151031
